FAERS Safety Report 6424958-4 (Version None)
Quarter: 2009Q4

REPORT INFORMATION
  Report Type: 
  Country: None (occurrence: None)
  Receive Date: 20091103
  Receipt Date: 20091027
  Transmission Date: 20100525
  Serious: Yes (Other)
  Sender: FDA-Public Use
  Company Number: US-ELI_LILLY_AND_COMPANY-US200910007086

PATIENT
  Sex: Female

DRUGS (1)
  1. HUMALOG [Suspect]
     Dosage: UNK, UNK
     Dates: start: 20060101, end: 20090101

REACTIONS (6)
  - BLINDNESS UNILATERAL [None]
  - CARDIAC FAILURE CONGESTIVE [None]
  - CATARACT [None]
  - RETINOPATHY [None]
  - SLEEP DISORDER [None]
  - VISUAL IMPAIRMENT [None]
